FAERS Safety Report 10472272 (Version 1)
Quarter: 2014Q3

REPORT INFORMATION
  Report Type: Other
  Country: IT (occurrence: IT)
  Receive Date: 20140924
  Receipt Date: 20140924
  Transmission Date: 20150326
  Serious: Yes (Other)
  Sender: FDA-Public Use
  Company Number: IT-SUN PHARMACEUTICAL INDUSTRIES LTD-2014SUN02173

PATIENT
  Age: 64 Year
  Sex: Male

DRUGS (8)
  1. OLANZAPINA SUN 5 MG COMPRESSA [Suspect]
     Active Substance: OLANZAPINE
     Indication: DEPRESSION
     Dosage: 5 MG DAILY
     Route: 048
     Dates: start: 20140428
  2. ASCRIPTIN ^ASCRIPTIN COMPRESSE, 20 COMPRESSE DIVISIBILI. [Concomitant]
     Indication: PRODUCT USED FOR UNKNOWN INDICATION
     Route: 048
  3. OLPREZIDE [Concomitant]
     Indication: PRODUCT USED FOR UNKNOWN INDICATION
     Route: 048
  4. CYMBALTA [Suspect]
     Active Substance: DULOXETINE HYDROCHLORIDE
     Indication: DEPRESSION
     Dosage: 1 DF DAILY
     Route: 048
     Dates: start: 20140428
  5. RIVOTRIL [Suspect]
     Active Substance: CLONAZEPAM
     Indication: DEPRESSION
     Dosage: 15 GTT DAILY
     Route: 048
     Dates: start: 20140428
  6. CARDIOASPIRIN ^100 MG COMPRESSE GASTRORESISTENTI^30 COMPRESSE [Concomitant]
     Indication: PRODUCT USED FOR UNKNOWN INDICATION
     Route: 048
  7. ANTUNES ^ 0,4 MG CAPSULE A RILASCIO MODIFICATO ^ 20 CAPSULE [Concomitant]
     Indication: PRODUCT USED FOR UNKNOWN INDICATION
     Route: 048
  8. AVODART ?0,5 MG CAPSULE MOLLI? 30 CAPSULE IN BLISTER PVC/PVDC [Concomitant]
     Indication: PRODUCT USED FOR UNKNOWN INDICATION
     Route: 048

REACTIONS (3)
  - Refusal of treatment by patient [None]
  - Balance disorder [Unknown]
  - Dizziness [Unknown]

NARRATIVE: CASE EVENT DATE: 20140504
